FAERS Safety Report 11712779 (Version 1)
Quarter: 2015Q4

REPORT INFORMATION
  Report Type: Spontaneous
  Country: US (occurrence: US)
  Receive Date: 20151104
  Receipt Date: 20151104
  Transmission Date: 20160304
  Serious: No
  Sender: FDA-Public Use
  Company Number: US-ELI_LILLY_AND_COMPANY-US201105003173

PATIENT
  Age: 59 Year
  Sex: Female

DRUGS (2)
  1. FORTEO [Suspect]
     Active Substance: TERIPARATIDE
     Dosage: 20 UG, QD
  2. FORTEO [Suspect]
     Active Substance: TERIPARATIDE
     Indication: OSTEOPOROSIS
     Dosage: 20 UG, QD
     Dates: start: 20110504

REACTIONS (15)
  - Dysgeusia [Unknown]
  - Intentional product misuse [Unknown]
  - Bone pain [Unknown]
  - Gastrooesophageal reflux disease [Unknown]
  - Thirst [Unknown]
  - Palpitations [Unknown]
  - Nausea [Unknown]
  - Speech disorder [Unknown]
  - Fatigue [Unknown]
  - Oesophageal disorder [Unknown]
  - Dry mouth [Unknown]
  - Arthralgia [Unknown]
  - Dizziness [Unknown]
  - Pain [Unknown]
  - Feeling abnormal [Unknown]

NARRATIVE: CASE EVENT DATE: 20110505
